FAERS Safety Report 12199848 (Version 1)
Quarter: 2016Q1

REPORT INFORMATION
  Report Type: Spontaneous
  Country: US (occurrence: None)
  Receive Date: 20160321
  Receipt Date: 20160321
  Transmission Date: 20160526
  Serious: No
  Sender: FDA-Public Use
  Company Number: None

PATIENT
  Sex: Male

DRUGS (9)
  1. ACARBOSE. [Concomitant]
     Active Substance: ACARBOSE
  2. SIMVASTATIN. [Concomitant]
     Active Substance: SIMVASTATIN
  3. ZYTIGA [Suspect]
     Active Substance: ABIRATERONE ACETATE
     Indication: PROSTATE CANCER
     Dosage: 1,000  MG QD PO
     Route: 048
     Dates: start: 20140920
  4. JANUVIA [Concomitant]
     Active Substance: SITAGLIPTIN PHOSPHATE
  5. METOPROLOL. [Concomitant]
     Active Substance: METOPROLOL
  6. TRADJENTA [Concomitant]
     Active Substance: LINAGLIPTIN
  7. NOVOLOG [Concomitant]
     Active Substance: INSULIN ASPART
  8. LOSARTAN. [Concomitant]
     Active Substance: LOSARTAN
  9. TAMSULOSIN [Concomitant]
     Active Substance: TAMSULOSIN

REACTIONS (3)
  - Blood glucose fluctuation [None]
  - Swelling [None]
  - Muscle spasms [None]

NARRATIVE: CASE EVENT DATE: 2016
